FAERS Safety Report 23414255 (Version 1)
Quarter: 2024Q1

REPORT INFORMATION
  Report Type: Spontaneous
  Country: US (occurrence: None)
  Receive Date: 20240118
  Receipt Date: 20240118
  Transmission Date: 20240409
  Serious: No
  Sender: FDA-Public Use
  Company Number: 2024A011818

PATIENT
  Age: 18 Month

DRUGS (1)
  1. BEYFORTUS [Suspect]
     Active Substance: NIRSEVIMAB-ALIP
     Indication: Antiviral prophylaxis
     Dosage: 100 MG, TOTAL100.0MG ONCE/SINGLE ADMINISTRATION
     Route: 030
     Dates: start: 20240109, end: 20240109

REACTIONS (1)
  - Incorrect dose administered [Unknown]

NARRATIVE: CASE EVENT DATE: 20240109
